FAERS Safety Report 18238296 (Version 2)
Quarter: 2021Q1

REPORT INFORMATION
  Report Type: Spontaneous
  Country: US (occurrence: US)
  Receive Date: 20200907
  Receipt Date: 20210127
  Transmission Date: 20210419
  Serious: No
  Sender: FDA-Public Use
  Company Number: US-PFIZER INC-2020344735

PATIENT
  Age: 60 Year
  Sex: Female

DRUGS (1)
  1. IBRANCE [Suspect]
     Active Substance: PALBOCICLIB
     Indication: BREAST CANCER FEMALE
     Dosage: 125 MG, CYCLIC(ONCE DAILY FOR 21 DAYS, THEN 1 WEEK OFF)
     Route: 048
     Dates: start: 20181214

REACTIONS (2)
  - Fatigue [Unknown]
  - Diarrhoea [Unknown]
